FAERS Safety Report 6911393-5 (Version None)
Quarter: 2010Q3

REPORT INFORMATION
  Report Type: 
  Country: None (occurrence: None)
  Receive Date: 20100806
  Receipt Date: 20100727
  Transmission Date: 20110219
  Serious: Yes (Other)
  Sender: FDA-Public Use
  Company Number: GB-PFIZER INC-2010094306

PATIENT
  Age: 41 Year
  Sex: Female

DRUGS (4)
  1. CHAMPIX [Suspect]
     Dosage: 1 MG, UNK
     Route: 048
     Dates: start: 20100601
  2. ACETYLSALICYLIC ACID [Concomitant]
     Dosage: UNK
  3. DIPYRIDAMOLE [Concomitant]
     Dosage: UNK
  4. SIMVASTATIN [Concomitant]
     Dosage: UNK

REACTIONS (2)
  - AGEUSIA [None]
  - DECREASED APPETITE [None]
